FAERS Safety Report 19057548 (Version 1)
Quarter: 2021Q1

REPORT INFORMATION
  Report Type: Spontaneous
  Country: US (occurrence: US)
  Receive Date: 20210324
  Receipt Date: 20210324
  Transmission Date: 20210420
  Serious: No
  Sender: FDA-Public Use
  Company Number: US-BIOCRYST-2021BCR00012

PATIENT
  Age: 32 Year
  Sex: Female
  Weight: 43.54 kg

DRUGS (6)
  1. MEDICAL MARIJUANA [Concomitant]
     Active Substance: CANNABIS SATIVA SUBSP. INDICA TOP
  2. EPIPEN [Concomitant]
     Active Substance: EPINEPHRINE
  3. ICATIBANT ACETATE [Concomitant]
     Active Substance: ICATIBANT ACETATE
  4. GABAPENTIN. [Concomitant]
     Active Substance: GABAPENTIN
  5. NORETHINDRONE. [Concomitant]
     Active Substance: NORETHINDRONE
  6. ORLADEYO [Suspect]
     Active Substance: BEROTRALSTAT HYDROCHLORIDE
     Indication: HEREDITARY ANGIOEDEMA
     Dosage: 150 MG, 1X/DAY
     Route: 048
     Dates: start: 20210108, end: 20210205

REACTIONS (11)
  - Gastrointestinal inflammation [Recovered/Resolved]
  - Fatigue [Recovering/Resolving]
  - Inflammation [Recovering/Resolving]
  - Abdominal pain upper [Recovered/Resolved]
  - Therapeutic product ineffective [Not Recovered/Not Resolved]
  - Personality change [Recovered/Resolved]
  - Abdominal distension [Recovered/Resolved]
  - Pain [Recovering/Resolving]
  - Pruritus [Recovered/Resolved]
  - Hereditary angioedema [Recovered/Resolved]
  - Discomfort [Recovering/Resolving]

NARRATIVE: CASE EVENT DATE: 2021
